FAERS Safety Report 8725671 (Version 2)
Quarter: 2013Q1

REPORT INFORMATION
  Report Type: Report from Study
  Country: CA (occurrence: CA)
  Receive Date: 20120815
  Receipt Date: 20130117
  Transmission Date: 20140127
  Serious: Yes (Other)
  Sender: FDA-Public Use
  Company Number: CA-ROCHE-1101061

PATIENT
  Age: 50 Year
  Sex: Female
  Weight: 60 kg

DRUGS (2)
  1. TOCILIZUMAB [Suspect]
     Indication: RHEUMATOID ARTHRITIS
     Route: 042
     Dates: start: 20120809, end: 20120809
  2. DEPO-MEDROL [Concomitant]

REACTIONS (4)
  - Dizziness [Unknown]
  - Visual impairment [Unknown]
  - Chest pain [Unknown]
  - Gastrooesophageal reflux disease [Unknown]
